FAERS Safety Report 23407662 (Version 2)
Quarter: 2024Q1

REPORT INFORMATION
  Report Type: Report from Study
  Country: US (occurrence: US)
  Receive Date: 20240117
  Receipt Date: 20240217
  Transmission Date: 20240410
  Serious: Yes (Hospitalization, Other)
  Sender: FDA-Public Use
  Company Number: US-ABBVIE-5590489

PATIENT
  Age: 57 Year
  Sex: Male

DRUGS (12)
  1. SKYRIZI [Suspect]
     Active Substance: RISANKIZUMAB-RZAA
     Indication: Psoriasis
     Route: 058
     Dates: start: 20231128
  2. SKYRIZI [Suspect]
     Active Substance: RISANKIZUMAB-RZAA
     Dosage: 2ND STARTER
     Route: 058
  3. BISOPROLOL FUMARATE\HYDROCHLOROTHIAZIDE [Concomitant]
     Active Substance: BISOPROLOL FUMARATE\HYDROCHLOROTHIAZIDE
     Indication: Product used for unknown indication
     Dosage: 5 - 6.25
     Dates: start: 2022
  4. CLOBETASOL PROPIONATE [Concomitant]
     Active Substance: CLOBETASOL PROPIONATE
     Indication: Product used for unknown indication
     Dosage: 0.058
     Route: 061
     Dates: start: 20240104
  5. FAMOTIDINE [Concomitant]
     Active Substance: FAMOTIDINE
     Indication: Product used for unknown indication
     Dosage: PILL?FORM STRENGTH: 20 MILLIGRAM
     Dates: start: 2012
  6. ASPIRIN [Concomitant]
     Active Substance: ASPIRIN
     Indication: Product used for unknown indication
     Dosage: PILL?FORM STRENGTH: 81 MILLIGRAM
     Dates: start: 2013
  7. EUCRISA [Concomitant]
     Active Substance: CRISABOROLE
     Indication: Product used for unknown indication
     Dosage: 28
     Dates: start: 2018
  8. BUSPIRONE [Concomitant]
     Active Substance: BUSPIRONE HYDROCHLORIDE
     Indication: Product used for unknown indication
     Dosage: 30
     Dates: start: 2022
  9. VENLAFAXINE HCL [Concomitant]
     Active Substance: VENLAFAXINE HYDROCHLORIDE
     Indication: Product used for unknown indication
     Dosage: 150?ER
     Dates: start: 2012
  10. TRIAMCINOLONE [Concomitant]
     Active Substance: TRIAMCINOLONE
     Indication: Product used for unknown indication
     Dosage: FORM STRENGTH: 0.1 PERCENT
     Route: 061
     Dates: start: 202310
  11. ATORVASTATIN [Concomitant]
     Active Substance: ATORVASTATIN
     Indication: Product used for unknown indication
     Dosage: FORM STRENGTH: 20 MILLIGRAM
     Dates: start: 2022
  12. POTASSIUM [Concomitant]
     Active Substance: POTASSIUM
     Indication: Product used for unknown indication
     Dosage: 10
     Dates: start: 2021

REACTIONS (10)
  - Dysarthria [Recovering/Resolving]
  - Seizure [Recovered/Resolved]
  - Cerebrovascular accident [Recovered/Resolved]
  - Skin burning sensation [Unknown]
  - Gait disturbance [Unknown]
  - Pain in extremity [Unknown]
  - Pain of skin [Unknown]
  - Skin haemorrhage [Unknown]
  - Pruritus [Unknown]
  - Skin fissures [Unknown]

NARRATIVE: CASE EVENT DATE: 20240101
